FAERS Safety Report 6769761-0 (Version None)
Quarter: 2010Q2

REPORT INFORMATION
  Report Type: 
  Country: None (occurrence: None)
  Receive Date: 20100615
  Receipt Date: 20100608
  Transmission Date: 20101027
  Serious: Yes (Other)
  Sender: FDA-Public Use
  Company Number: CA-ROCHE-708278

PATIENT
  Age: 51 Year
  Sex: Female
  Weight: 94 kg

DRUGS (2)
  1. HERCEPTIN [Suspect]
     Indication: DRUG USE FOR UNKNOWN INDICATION
     Dosage: DRUG:HERCEPTIN VIALS.ROUTE: INTRAVENOUS (NOS)
     Route: 042
  2. ACETAMINOPHEN [Concomitant]

REACTIONS (4)
  - ABDOMINAL PAIN [None]
  - CHEST DISCOMFORT [None]
  - DYSPNOEA [None]
  - INFUSION RELATED REACTION [None]
